FAERS Safety Report 6656207-6 (Version None)
Quarter: 2010Q1

REPORT INFORMATION
  Report Type: 
  Country: None (occurrence: None)
  Receive Date: 20100317
  Receipt Date: 20091203
  Transmission Date: 20100710
  Serious: No
  Sender: FDA-Public Use
  Company Number: DSA_42131_2009

PATIENT
  Sex: Male

DRUGS (1)
  1. XENAZINE [Suspect]
     Indication: MOVEMENT DISORDER
     Dosage: (12.5 MG BID ORAL)
     Route: 048
     Dates: start: 20090924

REACTIONS (1)
  - CONSTIPATION [None]
